FAERS Safety Report 9422817 (Version 2)
Quarter: 2013Q3

REPORT INFORMATION
  Report Type: Spontaneous
  Country: US (occurrence: US)
  Receive Date: 20130726
  Receipt Date: 20130827
  Transmission Date: 20140515
  Serious: Yes (Other)
  Sender: FDA-Public Use
  Company Number: PHEH2013US015337

PATIENT
  Sex: Female

DRUGS (4)
  1. DIOVAN [Suspect]
  2. VALSARTAN [Suspect]
  3. NORVASC [Concomitant]
  4. VANTELIN [Concomitant]

REACTIONS (2)
  - Feeling abnormal [Unknown]
  - Osteoarthritis [Unknown]
